FAERS Safety Report 6269183-5 (Version None)
Quarter: 2009Q3

REPORT INFORMATION
  Report Type: 
  Country: None (occurrence: None)
  Receive Date: 20090715
  Receipt Date: 20090708
  Transmission Date: 20100115
  Serious: Yes (Hospitalization)
  Sender: FDA-Public Use
  Company Number: FR-JNJFOC-20090702526

PATIENT
  Age: 77 Year
  Sex: Female

DRUGS (8)
  1. OFLOCET [Suspect]
     Indication: SIGMOIDITIS
     Route: 042
  2. SUFENTANIL [Suspect]
     Route: 042
  3. SUFENTANIL [Suspect]
     Indication: GENERAL ANAESTHESIA
     Route: 042
  4. FLAGYL [Suspect]
     Indication: SIGMOIDITIS
     Route: 042
  5. DIPRIVAN [Suspect]
     Indication: GENERAL ANAESTHESIA
     Route: 042
  6. NIMBEX [Suspect]
     Route: 042
  7. NIMBEX [Suspect]
     Indication: GENERAL ANAESTHESIA
     Route: 042
  8. AUGMENTIN [Concomitant]
     Indication: DIVERTICULITIS
     Route: 065

REACTIONS (4)
  - ANAPHYLACTIC REACTION [None]
  - ERYTHEMA [None]
  - HYPOTENSION [None]
  - TACHYCARDIA [None]
